FAERS Safety Report 7714649-1 (Version None)
Quarter: 2011Q3

REPORT INFORMATION
  Report Type: 
  Country: None (occurrence: None)
  Receive Date: 20110829
  Receipt Date: 20110824
  Transmission Date: 20111222
  Serious: Yes (Other)
  Sender: FDA-Public Use
  Company Number: US-AMGEN-USASP2011043498

PATIENT
  Age: 41 Year
  Sex: Female

DRUGS (5)
  1. DOCETAXEL [Concomitant]
     Indication: BREAST CANCER
  2. NEUPOGEN [Suspect]
     Indication: CHEMOTHERAPY
  3. NEULASTA [Suspect]
     Indication: CHEMOTHERAPY
  4. DOXORUBICIN HCL [Concomitant]
     Indication: BREAST CANCER
     Dosage: UNK
  5. CYCLOPHOSPHAMIDE [Concomitant]
     Indication: BREAST CANCER

REACTIONS (4)
  - PYREXIA [None]
  - BONE PAIN [None]
  - PRESYNCOPE [None]
  - BLOOD PRESSURE DECREASED [None]
